FAERS Safety Report 25494409 (Version 1)
Quarter: 2025Q2

REPORT INFORMATION
  Report Type: Spontaneous
  Country: US (occurrence: US)
  Receive Date: 20250630
  Receipt Date: 20250630
  Transmission Date: 20250717
  Serious: No
  Sender: TEVA
  Company Number: US-TEVA-VS-3175558

PATIENT
  Age: 52 Year
  Sex: Female

DRUGS (1)
  1. CABERGOLINE [Suspect]
     Active Substance: CABERGOLINE
     Indication: Product used for unknown indication
     Route: 065

REACTIONS (3)
  - Skin irritation [Unknown]
  - Product contamination physical [Unknown]
  - Dizziness [Unknown]
